FAERS Safety Report 26143384 (Version 1)
Quarter: 2025Q4

REPORT INFORMATION
  Report Type: Spontaneous
  Country: EU (occurrence: EU)
  Receive Date: 20251211
  Receipt Date: 20251211
  Transmission Date: 20260119
  Serious: Yes (Hospitalization, Other)
  Sender: AUROBINDO
  Company Number: EU-AEMPS-1781731

PATIENT
  Age: 66 Year
  Sex: Male

DRUGS (3)
  1. HYDROCHLOROTHIAZIDE [Interacting]
     Active Substance: HYDROCHLOROTHIAZIDE
     Indication: Hypertension
     Dosage: 25 MILLIGRAM, ONCE A DAY
     Dates: start: 20250912, end: 20250927
  2. LITHIUM CARBONATE [Interacting]
     Active Substance: LITHIUM CARBONATE
     Indication: Major depression
     Dosage: 1000 MILLIGRAM, ONCE A DAY
     Dates: start: 20170322, end: 20250926
  3. AMLODIPINE BESYLATE\OLMESARTAN MEDOXOMIL [Interacting]
     Active Substance: AMLODIPINE BESYLATE\OLMESARTAN MEDOXOMIL
     Indication: Hypertension
     Dosage: 1 DOSAGE FORM, ONCE A DAY
     Dates: start: 20250917, end: 20250927

REACTIONS (4)
  - Acute kidney injury [Recovered/Resolved]
  - Antipsychotic drug level increased [Recovered/Resolved]
  - Bradyphrenia [Recovered/Resolved]
  - Tremor [Recovered/Resolved]

NARRATIVE: CASE EVENT DATE: 20250926
